FAERS Safety Report 18538144 (Version 1)
Quarter: 2020Q4

REPORT INFORMATION
  Report Type: Spontaneous
  Country: DE (occurrence: DE)
  Receive Date: 20201124
  Receipt Date: 20201124
  Transmission Date: 20210114
  Serious: Yes (Other)
  Sender: FDA-Public Use
  Company Number: DE-DRREDDYS-GER/GER/20/0129233

PATIENT
  Age: 35 Year
  Sex: Female

DRUGS (4)
  1. CYTOTEC [Concomitant]
     Active Substance: MISOPROSTOL
     Indication: LABOUR INDUCTION
     Route: 067
     Dates: start: 20191120, end: 20191120
  2. VENLAFAXINE [Suspect]
     Active Substance: VENLAFAXINE HYDROCHLORIDE
     Indication: DEPRESSION
     Dosage: 112.5 [MG/D ]/ FROM WEEK 12 PLUS 2 DOSAGE REDUCED TO 75MG DAILY
     Route: 048
     Dates: start: 20190327, end: 20191121
  3. PROGESTERON [Concomitant]
     Active Substance: PROGESTERONE
     Indication: PROPHYLAXIS OF ABORTION
     Dosage: NO DETAILS
     Route: 067
  4. MIRTAZAPINE. [Concomitant]
     Active Substance: MIRTAZAPINE
     Indication: SLEEP DISORDER
     Dosage: 15 [MG/D ]
     Route: 048
     Dates: start: 20190327, end: 20191121

REACTIONS (3)
  - Exposure during pregnancy [Unknown]
  - Gestational diabetes [Recovered/Resolved]
  - Haemorrhage in pregnancy [Recovered/Resolved]
